FAERS Safety Report 5373325-3 (Version None)
Quarter: 2007Q2

REPORT INFORMATION
  Report Type: 
  Country: None (occurrence: None)
  Receive Date: 20070626
  Receipt Date: 20070626
  Transmission Date: 20071010
  Serious: Yes (Other)
  Sender: FDA-Public Use
  Company Number: None

PATIENT
  Sex: Female
  Weight: 63.5036 kg

DRUGS (2)
  1. TOPAMAX [Suspect]
     Indication: HEADACHE
     Dosage: 75MG  Q DAY  PO
     Route: 048
     Dates: start: 20070424, end: 20070524
  2. TOPAMAX [Suspect]
     Indication: MIGRAINE
     Dosage: 75MG  Q DAY  PO
     Route: 048
     Dates: start: 20070424, end: 20070524

REACTIONS (11)
  - ABNORMAL BEHAVIOUR [None]
  - AFFECTIVE DISORDER [None]
  - ANOREXIA [None]
  - CRYING [None]
  - DIZZINESS [None]
  - DYSGEUSIA [None]
  - FEAR [None]
  - FEELING ABNORMAL [None]
  - HALLUCINATION, VISUAL [None]
  - MOOD ALTERED [None]
  - THINKING ABNORMAL [None]
